FAERS Safety Report 9282717 (Version 3)
Quarter: 2013Q2

REPORT INFORMATION
  Report Type: Spontaneous
  Country: IT (occurrence: IT)
  Receive Date: 20130510
  Receipt Date: 20130621
  Transmission Date: 20140414
  Serious: Yes (Death, Hospitalization)
  Sender: FDA-Public Use
  Company Number: IT-BRISTOL-MYERS SQUIBB COMPANY-18874321

PATIENT
  Age: 79 Year
  Sex: Male

DRUGS (8)
  1. COUMADIN TABS 5 MG [Suspect]
     Indication: ATRIAL FIBRILLATION
     Route: 048
     Dates: start: 20050101, end: 20130129
  2. DILTIAZEM HCL [Concomitant]
     Indication: HYPERTENSION
     Route: 048
  3. ENALAPRIL MALEATE [Concomitant]
     Indication: HYPERTENSION
     Route: 048
  4. PANTOPRAZOLE SODIUM [Concomitant]
     Indication: PROPHYLAXIS
     Route: 048
  5. KANRENOL [Concomitant]
     Indication: HYPERTENSION
     Dosage: 25MG TABS
     Route: 048
  6. SERETIDE [Concomitant]
     Indication: BRONCHITIS CHRONIC
     Dosage: 25/125MCG PRESSURED SUSPENSION FOR INHALATION, 25MCG/INHALATION
  7. TAVOR [Concomitant]
     Indication: INSOMNIA
     Dosage: 1MG TAB
     Route: 048
  8. LASIX [Concomitant]
     Indication: HYPERTENSION
     Dosage: 25MG TABS
     Route: 048

REACTIONS (4)
  - Cerebral haemorrhage [Fatal]
  - Cardiac arrest [Fatal]
  - Fall [Unknown]
  - Head injury [Unknown]
